FAERS Safety Report 6292927-3 (Version None)
Quarter: 2009Q3

REPORT INFORMATION
  Report Type: 
  Country: None (occurrence: None)
  Receive Date: 20090731
  Receipt Date: 20090723
  Transmission Date: 20100115
  Serious: Yes (Hospitalization)
  Sender: FDA-Public Use
  Company Number: US-ELI_LILLY_AND_COMPANY-US200905000171

PATIENT
  Sex: Male
  Weight: 114.29 kg

DRUGS (19)
  1. BYETTA [Suspect]
     Indication: TYPE 2 DIABETES MELLITUS
     Dosage: 5 UG, 2/D
     Route: 058
     Dates: start: 20090201, end: 20090301
  2. BYETTA [Suspect]
     Dosage: 10 UG, 2/D
     Route: 058
     Dates: start: 20090301, end: 20090511
  3. AMARYL [Concomitant]
     Indication: TYPE 2 DIABETES MELLITUS
     Dosage: 4 MG, DAILY (1/D)
     Route: 048
     Dates: end: 20090301
  4. AMARYL [Concomitant]
     Dosage: 4 MG, DAILY (1/D)
     Dates: start: 20090401
  5. STARLIX [Concomitant]
     Indication: TYPE 2 DIABETES MELLITUS
     Dosage: 120 MG, 3/D
     Route: 048
  6. ADVAIR HFA [Concomitant]
     Indication: CHRONIC OBSTRUCTIVE PULMONARY DISEASE
     Dosage: UNK, 2/D
  7. COREG [Concomitant]
     Dosage: 5.25 MG, 2/D
  8. COREG [Concomitant]
     Dosage: 6.25 MG, 2/D
     Route: 048
  9. DIOVAN /01319601/ [Concomitant]
     Indication: BLOOD PRESSURE INCREASED
     Dosage: 40 MG, DAILY (1/D)
     Route: 048
  10. LOVASTATIN [Concomitant]
     Indication: BLOOD CHOLESTEROL INCREASED
     Dosage: 10 MG, DAILY (1/D)
  11. POTASSIUM CHLORIDE [Concomitant]
     Dosage: 250 UG, UNK
  12. ASPIRIN /USA/ [Concomitant]
     Dosage: 81 MG, UNK
     Route: 048
  13. LASIX /USA/ [Concomitant]
     Indication: DIURETIC THERAPY
     Dosage: 40 MG, DAILY (1/D)
     Route: 048
  14. PRILOSEC [Concomitant]
     Indication: ANTACID THERAPY
     Dosage: 20 MG, UNK
  15. FISH OIL [Concomitant]
     Dosage: 1000 MG, DAILY (1/D)
  16. AVODART [Concomitant]
     Indication: PROSTATOMEGALY
     Dosage: 5 MG, DAILY (1/D)
  17. AVODART [Concomitant]
     Dosage: 0.5 MG, DAILY (1/D)
     Route: 048
  18. MATURE MULTIVITAMINS [Concomitant]
     Dosage: UNK, UNKNOWN
  19. JANUVIA [Concomitant]
     Indication: TYPE 2 DIABETES MELLITUS
     Dosage: 100 MG, DAILY (1/D)
     Route: 048

REACTIONS (10)
  - BLOOD GLUCOSE DECREASED [None]
  - BLOOD GLUCOSE INCREASED [None]
  - CHEST DISCOMFORT [None]
  - DECREASED APPETITE [None]
  - DYSGEUSIA [None]
  - FEELING JITTERY [None]
  - HYPERHIDROSIS [None]
  - NAUSEA [None]
  - TREMOR [None]
  - WEIGHT DECREASED [None]
